FAERS Safety Report 5067708-9 (Version None)
Quarter: 2006Q3

REPORT INFORMATION
  Report Type: 
  Country: None (occurrence: None)
  Receive Date: 20060728
  Receipt Date: 20060712
  Transmission Date: 20061208
  Serious: Yes (Hospitalization)
  Sender: FDA-Public Use
  Company Number: FR200604001313

PATIENT
  Age: 83 Year
  Sex: Female

DRUGS (2)
  1. FORTEO [Suspect]
     Indication: OSTEOPOROSIS
     Dosage: 20 UG DIALY (1/D) SUBCUTANEOUS
     Route: 058
     Dates: start: 20051207, end: 20060331
  2. FORTEO PEN (FORTEO PEN) [Concomitant]

REACTIONS (1)
  - ACUTE PULMONARY OEDEMA [None]
